FAERS Safety Report 4807407-9 (Version None)
Quarter: 2005Q4

REPORT INFORMATION
  Report Type: 
  Country: None (occurrence: None)
  Receive Date: 20051024
  Receipt Date: 20050419
  Transmission Date: 20060501
  Serious: Yes (Hospitalization, Other)
  Sender: FDA-Public Use
  Company Number: US-MERCK-0504USA03744

PATIENT
  Age: 38 Year
  Sex: Female
  Weight: 145 kg

DRUGS (7)
  1. VIOXX [Suspect]
     Indication: LIMB INJURY
     Route: 048
     Dates: start: 20010101, end: 20040901
  2. VIOXX [Suspect]
     Indication: BACK INJURY
     Route: 048
     Dates: start: 20010101, end: 20040901
  3. LASIX [Concomitant]
     Indication: OEDEMA PERIPHERAL
     Route: 065
     Dates: start: 19990101, end: 20050101
  4. LORCET-HD [Concomitant]
     Route: 065
  5. SOMA [Concomitant]
     Route: 065
  6. XANAX [Concomitant]
     Indication: ANXIETY
     Route: 065
  7. XANAX [Concomitant]
     Indication: PANIC DISORDER
     Route: 065

REACTIONS (5)
  - ADVERSE EVENT [None]
  - BLOOD CHOLESTEROL INCREASED [None]
  - GASTRIC DISORDER [None]
  - MYOCARDIAL INFARCTION [None]
  - WRIST SURGERY [None]
